FAERS Safety Report 6593555-2 (Version None)
Quarter: 2010Q1

REPORT INFORMATION
  Report Type: 
  Country: None (occurrence: None)
  Receive Date: 20100222
  Receipt Date: 20090721
  Transmission Date: 20100710
  Serious: No
  Sender: FDA-Public Use
  Company Number: US-BRISTOL-MYERS SQUIBB COMPANY-14710891

PATIENT
  Sex: Male
  Weight: 118 kg

DRUGS (1)
  1. ORENCIA [Suspect]
     Dosage: 5 DOSAGEFORM = 5 VIALS INSTEAD OF 4 (1000 MG)

REACTIONS (1)
  - OVERDOSE [None]
